FAERS Safety Report 14634154 (Version 1)
Quarter: 2018Q1

REPORT INFORMATION
  Report Type: Report from Study
  Country: None (occurrence: GR)
  Receive Date: 20180314
  Receipt Date: 20180314
  Transmission Date: 20180509
  Serious: Yes (Death)
  Sender: FDA-Public Use
  Company Number: GR-ABBVIE-18K-066-2287684-00

PATIENT
  Sex: Male

DRUGS (1)
  1. DUODOPA [Suspect]
     Active Substance: CARBIDOPA\LEVODOPA
     Indication: PARKINSON^S DISEASE
     Dosage: MORNING DOSE:9.0ML; CONTINUOUS RATE:0.3ML/HR; EXTRA DOSE:0.5ML
     Route: 050
     Dates: start: 2011

REACTIONS (1)
  - Pulmonary oedema [Fatal]
